FAERS Safety Report 17674025 (Version 1)
Quarter: 2020Q2

REPORT INFORMATION
  Report Type: Spontaneous
  Country: GB (occurrence: GB)
  Receive Date: 20200416
  Receipt Date: 20200416
  Transmission Date: 20200714
  Serious: Yes (Other)
  Sender: FDA-Public Use
  Company Number: GB-TEVA-2020-GB-1224952

PATIENT
  Sex: Male

DRUGS (2)
  1. EMTRICITABINE W/TENOFOVIR [Suspect]
     Active Substance: EMTRICITABINE\TENOFOVIR DISOPROXIL
     Route: 065
  2. REZOLSTA (DARUNAVIR/COBICISTAT) [Suspect]
     Active Substance: COBICISTAT\DARUNAVIR ETHANOLATE
     Route: 065

REACTIONS (2)
  - Oropharyngeal pain [Unknown]
  - Lower respiratory tract infection [Unknown]
